FAERS Safety Report 9522193 (Version 1)
Quarter: 2013Q3

REPORT INFORMATION
  Report Type: Spontaneous
  Country: US (occurrence: None)
  Receive Date: 20130911
  Receipt Date: 20130911
  Transmission Date: 20140515
  Serious: No
  Sender: FDA-Public Use
  Company Number: AEUSA201200450

PATIENT
  Sex: Male
  Weight: 51.26 kg

DRUGS (2)
  1. GAMUNEX-C [Suspect]
     Indication: TRISOMY 21
     Route: 042
     Dates: start: 20120713
  2. GAMUNEX-C [Suspect]
     Indication: AUTISM
     Route: 042
     Dates: start: 20120713

REACTIONS (3)
  - Blister [None]
  - Pollakiuria [None]
  - Urinary incontinence [None]
